FAERS Safety Report 17338920 (Version 1)
Quarter: 2020Q1

REPORT INFORMATION
  Report Type: Spontaneous
  Country: US (occurrence: US)
  Receive Date: 20200113
  Receipt Date: 20200113
  Transmission Date: 20200409
  Serious: Yes (Life-Threatening, Hospitalization, Disabling)
  Sender: FDA-Public Use
  Company Number: None

PATIENT
  Age: 81 Year
  Sex: Female
  Weight: 58.97 kg

DRUGS (1)
  1. ALLOPURINOL. [Suspect]
     Active Substance: ALLOPURINOL
     Dosage: ?          QUANTITY:1 PILL;OTHER FREQUENCY:ONCE TIME DAILY IN;?
     Route: 048
     Dates: start: 20190910, end: 20191011

REACTIONS (10)
  - Blood uric acid [None]
  - Decreased interest [None]
  - Rash pruritic [None]
  - Liver function test abnormal [None]
  - Mental disorder [None]
  - Renal impairment [None]
  - Lethargy [None]
  - International normalised ratio increased [None]
  - Rash [None]
  - Pyrexia [None]

NARRATIVE: CASE EVENT DATE: 20191210
